FAERS Safety Report 15902653 (Version 1)
Quarter: 2019Q1

REPORT INFORMATION
  Report Type: Spontaneous
  Country: IN (occurrence: IN)
  Receive Date: 20190202
  Receipt Date: 20190202
  Transmission Date: 20190417
  Serious: No
  Sender: FDA-Public Use
  Company Number: IN-ALKEM LABORATORIES LIMITED-IN-ALKEM-2018-05975

PATIENT
  Sex: Female

DRUGS (3)
  1. HYDRALAZINE HYDROCHLORIDE. [Suspect]
     Active Substance: HYDRALAZINE HYDROCHLORIDE
     Indication: GESTATIONAL HYPERTENSION
     Dosage: 5 MG, SLOWLY OVER 2 MINUTES (1ST DOSE)
     Route: 042
  2. HYDRALAZINE HYDROCHLORIDE. [Suspect]
     Active Substance: HYDRALAZINE HYDROCHLORIDE
     Dosage: 10 MG, SLOWLY IN 2-4 MINUTES (3 RD DOSE)
     Route: 042
  3. HYDRALAZINE HYDROCHLORIDE. [Suspect]
     Active Substance: HYDRALAZINE HYDROCHLORIDE
     Dosage: 10 MG, SLOWLY OVER 2-4 MINUTES (2ND DOSE)
     Route: 042

REACTIONS (1)
  - Exposure during pregnancy [Unknown]
